FAERS Safety Report 4524878-6 (Version None)
Quarter: 2004Q4

REPORT INFORMATION
  Report Type: 
  Country: None (occurrence: None)
  Receive Date: 20041117
  Receipt Date: 20040122
  Transmission Date: 20050328
  Serious: Yes (Other)
  Sender: FDA-Public Use
  Company Number: 2004S1000245

PATIENT
  Age: 26 Year
  Sex: Female
  Weight: 68.0396 kg

DRUGS (4)
  1. CLOZAPINE [Suspect]
     Indication: BIPOLAR DISORDER
     Dosage: 50MG HS, ORAL
     Route: 048
     Dates: start: 20010101
  2. CLOZAPINE [Suspect]
     Indication: PERSONALITY DISORDER
     Dosage: 50MG HS, ORAL
     Route: 048
     Dates: start: 20010101
  3. CLOZAPINE [Suspect]
     Indication: PERSONALITY DISORDER
     Dosage: 200MG HS, ORAL
     Route: 048
     Dates: start: 20010101
  4. GABAPENTIN [Concomitant]

REACTIONS (1)
  - CONVULSION [None]
